FAERS Safety Report 8834562 (Version 2)
Quarter: 2012Q4

REPORT INFORMATION
  Report Type: 
  Country: US (occurrence: US)
  Receive Date: 20121010
  Receipt Date: 20121128
  Transmission Date: 20130627
  Serious: No
  Sender: FDA-Public Use
  Company Number: US-BAYER-2012-098796

PATIENT
  Sex: Female
  Weight: 54 kg

DRUGS (1)
  1. AVELOX I.V. [Suspect]
     Indication: BRONCHITIS
     Dosage: 400 mg, QD
     Route: 042
     Dates: start: 20120918, end: 20120919

REACTIONS (4)
  - Hypoaesthesia [Recovering/Resolving]
  - Hypoaesthesia [Recovering/Resolving]
  - Hypoaesthesia [None]
  - Hypoaesthesia [None]
